FAERS Safety Report 6428185-6 (Version None)
Quarter: 2009Q4

REPORT INFORMATION
  Report Type: 
  Country: None (occurrence: None)
  Receive Date: 20091030
  Receipt Date: 20091016
  Transmission Date: 20100525
  Serious: Yes (Other)
  Sender: FDA-Public Use
  Company Number: 1000009686

PATIENT
  Age: 45 Year
  Sex: Female

DRUGS (1)
  1. ESCITALOPRAM [Suspect]
     Dosage: 15 MG, (15 MG, 1 IN 1 D), ORAL
     Route: 048
     Dates: start: 20090501

REACTIONS (2)
  - NIGHTMARE [None]
  - SOMNAMBULISM [None]
